FAERS Safety Report 22285609 (Version 9)
Quarter: 2024Q3

REPORT INFORMATION
  Report Type: Spontaneous
  Country: US (occurrence: US)
  Receive Date: 20230504
  Receipt Date: 20240701
  Transmission Date: 20241017
  Serious: No
  Sender: PFIZER
  Company Number: US-PFIZER INC-PV202300014169

PATIENT
  Age: 78 Year
  Sex: Female

DRUGS (2)
  1. CIBINQO [Suspect]
     Active Substance: ABROCITINIB
     Indication: Dermatitis atopic
     Dosage: UNK
     Route: 048
  2. CIBINQO [Suspect]
     Active Substance: ABROCITINIB
     Indication: Eczema

REACTIONS (8)
  - Blood cholesterol increased [Unknown]
  - Urticaria [Unknown]
  - Herpes zoster [Unknown]
  - Blister [Not Recovered/Not Resolved]
  - Abdominal discomfort [Unknown]
  - Renal disorder [Unknown]
  - Therapeutic response unexpected [Unknown]
  - Psoriasis [Unknown]

NARRATIVE: CASE EVENT DATE: 20230101
